FAERS Safety Report 4908490-2 (Version None)
Quarter: 2006Q1

REPORT INFORMATION
  Report Type: 
  Country: None (occurrence: None)
  Receive Date: 20060210
  Receipt Date: 20050803
  Transmission Date: 20060701
  Serious: No
  Sender: FDA-Public Use
  Company Number: US-GLAXOSMITHKLINE-A0568809A

PATIENT
  Age: 58 Year
  Sex: Female

DRUGS (4)
  1. PAXIL CR [Suspect]
     Indication: DEPRESSION
     Dosage: 25MG PER DAY
     Route: 048
  2. ACIPHEX [Concomitant]
  3. LIPITOR [Concomitant]
  4. CELEBREX [Concomitant]

REACTIONS (1)
  - HYPERHIDROSIS [None]
